FAERS Safety Report 21419759 (Version 1)
Quarter: 2022Q4

REPORT INFORMATION
  Report Type: Spontaneous
  Country: US (occurrence: None)
  Receive Date: 20221005
  Receipt Date: 20221005
  Transmission Date: 20230112
  Serious: Yes (Hospitalization)
  Sender: FDA-Public Use
  Company Number: None

PATIENT
  Sex: Female

DRUGS (11)
  1. MYCOPHENOLIC ACID [Suspect]
     Active Substance: MYCOPHENOLIC ACID
     Indication: Renal transplant
     Dosage: OTHER FREQUENCY : MORNING AND EVENIN;?TAKE 3 CAPSULES BY MOUTH EVERY MORNING AND 2 CAPSULES EVERY EV
     Route: 048
     Dates: start: 20210715
  2. ALBUTEROL AER HFA [Concomitant]
  3. AZITHROMYCIN TAB [Concomitant]
  4. METFORMIN TAB [Concomitant]
  5. MYCOPHENOLATE CAP [Concomitant]
  6. ONDANSETRON TAB [Concomitant]
  7. SIMVASTATIN [Concomitant]
     Active Substance: SIMVASTATIN
  8. STIOLTO AER [Concomitant]
  9. TACROLIMUS [Concomitant]
     Active Substance: TACROLIMUS
  10. TIZANIDINE TAB [Concomitant]
  11. VICTOZA INJ [Concomitant]

REACTIONS (1)
  - Hospitalisation [None]
